FAERS Safety Report 18886916 (Version 1)
Quarter: 2021Q1

REPORT INFORMATION
  Report Type: Spontaneous
  Country: US (occurrence: US)
  Receive Date: 20210212
  Receipt Date: 20210212
  Transmission Date: 20210420
  Serious: No
  Sender: FDA-Public Use
  Company Number: US-IBSA PHARMA INC.-2020IBS000138

PATIENT

DRUGS (2)
  1. TIROSINT?SOL [Suspect]
     Active Substance: LEVOTHYROXINE SODIUM
     Dosage: 137 ?G, QD
     Route: 048
     Dates: start: 20200619, end: 20200716
  2. TIROSINT?SOL [Suspect]
     Active Substance: LEVOTHYROXINE SODIUM
     Indication: HYPOTHYROIDISM
     Dosage: 112 ?G, QD
     Route: 048
     Dates: start: 20200501, end: 20200618

REACTIONS (9)
  - Malaise [Recovered/Resolved]
  - Abdominal distension [Recovered/Resolved]
  - Feeling abnormal [Recovered/Resolved]
  - Product formulation issue [Unknown]
  - Fatigue [Recovered/Resolved]
  - Asthenia [Recovered/Resolved]
  - Blood thyroid stimulating hormone increased [Recovered/Resolved]
  - Weight increased [Recovered/Resolved]
  - Alopecia [Recovered/Resolved]

NARRATIVE: CASE EVENT DATE: 2020
